FAERS Safety Report 12780259 (Version 1)
Quarter: 2016Q3

REPORT INFORMATION
  Report Type: Spontaneous
  Country: RO (occurrence: RO)
  Receive Date: 20160926
  Receipt Date: 20160926
  Transmission Date: 20161109
  Serious: Yes (Hospitalization, Other)
  Sender: FDA-Public Use
  Company Number: RO-NOVOPROD-510996

PATIENT
  Age: 11 Year
  Sex: Male
  Weight: 43 kg

DRUGS (9)
  1. PARACETAMOL [Concomitant]
     Active Substance: ACETAMINOPHEN
     Dosage: 500 MG, BID
     Route: 042
  2. ALGOCALMIN [Concomitant]
     Active Substance: METAMIZOLE SODIUM
  3. DEXAMETAZONA                       /00016001/ [Concomitant]
     Dosage: 6 MG, BID
  4. NOVOSEVEN [Suspect]
     Active Substance: COAGULATION FACTOR VIIA RECOMBINANT HUMAN
     Indication: HAEMATURIA
     Dosage: INCREASED 4 MG PER ADMINISTRATION
     Route: 042
  5. DEXAMETAZONA                       /00016001/ [Concomitant]
     Dosage: UNK
  6. NOVOSEVEN [Suspect]
     Active Substance: COAGULATION FACTOR VIIA RECOMBINANT HUMAN
     Indication: HAEMOPHILIA A WITH ANTI FACTOR VIII
     Dosage: 8 MG, QD (2 MG EVERY 6 HOUR)
     Route: 042
  7. DEXAMETAZONA                       /00016001/ [Concomitant]
     Dosage: 8 MG, BID
  8. NOSPA                              /00359202/ [Concomitant]
  9. CEFTRIAXONUM [Concomitant]
     Dosage: 1.5 MG, BID
     Route: 042

REACTIONS (2)
  - Haematuria [Unknown]
  - Drug ineffective [Unknown]
